FAERS Safety Report 9928383 (Version 2)
Quarter: 2014Q1

REPORT INFORMATION
  Report Type: Spontaneous
  Country: US (occurrence: US)
  Receive Date: 20140227
  Receipt Date: 20140314
  Transmission Date: 20141002
  Serious: Yes (Other)
  Sender: FDA-Public Use
  Company Number: US-PFIZER INC-2014053015

PATIENT
  Age: 49 Year
  Sex: Male
  Weight: 127 kg

DRUGS (2)
  1. GENOTROPIN [Suspect]
     Indication: GROWTH HORMONE DEFICIENCY
     Dosage: 0.8 MG, DAILY
     Route: 058
     Dates: start: 20131121
  2. GENOTROPIN [Suspect]
     Dosage: UNK

REACTIONS (3)
  - Pituitary tumour [Unknown]
  - Arthralgia [Unknown]
  - Oedema [Unknown]
